FAERS Safety Report 12799272 (Version 4)
Quarter: 2020Q3

REPORT INFORMATION
  Report Type: Spontaneous
  Country: FR (occurrence: FR)
  Receive Date: 20160930
  Receipt Date: 20200910
  Transmission Date: 20201102
  Serious: Yes (Hospitalization)
  Sender: FDA-Public Use
  Company Number: FR-ASTRAZENECA-2016SF02698

PATIENT
  Age: 66 Year
  Sex: Male
  Weight: 158 kg

DRUGS (15)
  1. PRESTOLE [Concomitant]
  2. IXPRIM [Suspect]
     Active Substance: ACETAMINOPHEN\TRAMADOL HYDROCHLORIDE
     Indication: PAIN
     Dosage: 37.5 MG/ 325 MG 1 DF 3 TIMES PER DAY
     Route: 048
  3. PRAVADUAL [Concomitant]
     Active Substance: ASPIRIN\PRAVASTATIN
  4. DOLIPRANE [Concomitant]
     Active Substance: ACETAMINOPHEN
  5. LEVEMIR [Concomitant]
     Active Substance: INSULIN DETEMIR
  6. GLUCOPHAGE [Concomitant]
     Active Substance: METFORMIN HYDROCHLORIDE
  7. VOLTARENE EMULGEL [Concomitant]
     Active Substance: DICLOFENAC DIETHYLAMINE
  8. DEXERYL [Concomitant]
  9. IXEL [Suspect]
     Active Substance: MILNACIPRAN HYDROCHLORIDE
     Indication: DEPRESSION
     Route: 048
  10. SYMBICORT [Suspect]
     Active Substance: BUDESONIDE\FORMOTEROL FUMARATE DIHYDRATE
     Indication: CHRONIC OBSTRUCTIVE PULMONARY DISEASE
     Dosage: 320/9 UG PER DOSE ONE INHALATION TWO TIMES A DAY
     Route: 055
  11. IXEL [Suspect]
     Active Substance: MILNACIPRAN HYDROCHLORIDE
     Indication: DEPRESSION
     Route: 048
  12. VICTOZA [Concomitant]
     Active Substance: LIRAGLUTIDE
  13. NOVORAPID [Concomitant]
     Active Substance: INSULIN ASPART
  14. PROCORALAN [Concomitant]
     Active Substance: IVABRADINE
  15. SULFARLEM [Concomitant]
     Active Substance: ANETHOLTRITHION

REACTIONS (1)
  - Pseudophaeochromocytoma [Not Recovered/Not Resolved]

NARRATIVE: CASE EVENT DATE: 201406
